FAERS Safety Report 4796976-3 (Version None)
Quarter: 2005Q3

REPORT INFORMATION
  Report Type: 
  Country: None (occurrence: None)
  Receive Date: 20050916
  Receipt Date: 20050301
  Transmission Date: 20060218
  Serious: Yes (Other)
  Sender: FDA-Public Use
  Company Number: US-JNJFOC-20050300770

PATIENT
  Age: 27 Year
  Sex: Male
  Weight: 112.4921 kg

DRUGS (6)
  1. TOPAMAX [Suspect]
     Indication: PAIN MANAGEMENT
     Dosage: ORAL; 100 MG,  IN 1 DAY, ORAL
     Route: 048
     Dates: end: 20050201
  2. OXYCONTIN [Concomitant]
  3. NEURONTIN [Concomitant]
  4. KLONOPIN [Concomitant]
  5. EFFEXOR [Concomitant]
  6. METHADONE [Concomitant]

REACTIONS (2)
  - DIABETES MELLITUS INSULIN-DEPENDENT [None]
  - NYSTAGMUS [None]
